FAERS Safety Report 18372079 (Version 1)
Quarter: 2020Q4

REPORT INFORMATION
  Report Type: Spontaneous
  Country: JP (occurrence: JP)
  Receive Date: 20201012
  Receipt Date: 20201012
  Transmission Date: 20210114
  Serious: Yes (Other)
  Sender: FDA-Public Use
  Company Number: JP-SUNOVION-2020SUN002987

PATIENT
  Age: 83 Year
  Sex: Female
  Weight: 39 kg

DRUGS (6)
  1. LIMAPROST ALFADEX [Concomitant]
     Active Substance: LIMAPROST
     Dosage: DOSE UNKNOWN
     Route: 065
     Dates: start: 20200204
  2. KARY UNI [Concomitant]
     Active Substance: PIRENOXINE
     Dosage: DOSE UNKNOWN
     Route: 047
     Dates: start: 20131207
  3. HYALEIN [Concomitant]
     Active Substance: HYALURONATE SODIUM
     Dosage: DOSE UNKNOWN
     Route: 047
     Dates: start: 20181116
  4. LUNESTA [Suspect]
     Active Substance: ESZOPICLONE
     Indication: INSOMNIA
     Dosage: 2 MG, QD
     Route: 048
     Dates: start: 20200627, end: 20200630
  5. ATORVASTATIN [Concomitant]
     Active Substance: ATORVASTATIN
     Dosage: DOSE UNKNOWN
     Route: 065
     Dates: start: 20200204
  6. ALFACALCIDOL [Concomitant]
     Active Substance: ALFACALCIDOL
     Dosage: DOSE UNKNOWN
     Route: 065
     Dates: start: 20200204

REACTIONS (1)
  - Taste disorder [Recovering/Resolving]

NARRATIVE: CASE EVENT DATE: 20200629
